FAERS Safety Report 4562376-4 (Version None)
Quarter: 2005Q1

REPORT INFORMATION
  Report Type: 
  Country: None (occurrence: None)
  Receive Date: 20050127
  Receipt Date: 20041224
  Transmission Date: 20050727
  Serious: Yes (Death, Hospitalization)
  Sender: FDA-Public Use
  Company Number: 200413999JP

PATIENT
  Age: 73 Year
  Sex: Female
  Weight: 57.5 kg

DRUGS (5)
  1. KETEK [Suspect]
     Indication: BRONCHITIS ACUTE
     Route: 048
     Dates: start: 20041220, end: 20041221
  2. HYPEN [Concomitant]
     Route: 048
     Dates: start: 20040810, end: 20041221
  3. NORVASC [Concomitant]
     Route: 048
     Dates: start: 20040810, end: 20041221
  4. ZOFRAN [Concomitant]
     Route: 048
     Dates: start: 20041220, end: 20041221
  5. ROCEPHIN [Concomitant]
     Route: 042
     Dates: start: 20041220, end: 20041220

REACTIONS (8)
  - ANURIA [None]
  - APHASIA [None]
  - DEPRESSED LEVEL OF CONSCIOUSNESS [None]
  - HYPOTENSION [None]
  - PNEUMONIA [None]
  - RENAL FAILURE ACUTE [None]
  - RESPIRATORY ARREST [None]
  - URINARY TRACT INFECTION [None]
